FAERS Safety Report 14778595 (Version 3)
Quarter: 2018Q3

REPORT INFORMATION
  Report Type: Spontaneous
  Country: US (occurrence: US)
  Receive Date: 20180419
  Receipt Date: 20180710
  Transmission Date: 20181010
  Serious: Yes (Other)
  Sender: FDA-Public Use
  Company Number: US-PFIZER INC-2018159514

PATIENT
  Age: 77 Year
  Sex: Female
  Weight: 58.97 kg

DRUGS (8)
  1. LYRICA [Suspect]
     Active Substance: PREGABALIN
     Indication: FIBROMYALGIA
     Dosage: 25 MG, AS NEEDED
     Route: 048
     Dates: start: 20180411
  2. TOPROL XL [Concomitant]
     Active Substance: METOPROLOL SUCCINATE
     Dosage: 50 MG, 1X/DAY
     Route: 048
  3. ALTACE [Concomitant]
     Active Substance: RAMIPRIL
     Dosage: 5 MG, 1X/DAY
     Route: 048
  4. CRESTOR [Concomitant]
     Active Substance: ROSUVASTATIN CALCIUM
     Dosage: 5 MG, ALTERNATE DAY (10 MG TABLET IN HALF FOR 5 MG)
     Route: 048
  5. BAYER ASPIRIN [Concomitant]
     Active Substance: ASPIRIN
     Indication: PAIN
     Dosage: 500 MG, AS NEEDED
     Route: 048
  6. LYRICA [Suspect]
     Active Substance: PREGABALIN
     Indication: PAIN
  7. LYRICA [Suspect]
     Active Substance: PREGABALIN
     Indication: NEURALGIA
  8. METHOTREXATE. [Concomitant]
     Active Substance: METHOTREXATE
     Indication: RHEUMATOID ARTHRITIS
     Dosage: UNK, WEEKLY (2.5)

REACTIONS (4)
  - Vision blurred [Unknown]
  - Intentional product misuse [Unknown]
  - Angina pectoris [Recovered/Resolved]
  - Drug ineffective [Unknown]

NARRATIVE: CASE EVENT DATE: 2018
